FAERS Safety Report 4588614-X (Version None)
Quarter: 2005Q1

REPORT INFORMATION
  Report Type: 
  Country: None (occurrence: None)
  Receive Date: 20050215
  Receipt Date: 20050215
  Transmission Date: 20050727
  Serious: Yes (Disabling)
  Sender: FDA-Public Use
  Company Number: None

PATIENT
  Age: 57 Year
  Sex: Female
  Weight: 86.1834 kg

DRUGS (8)
  1. ZICAM COLD REMEDY MATRIXX [Suspect]
     Indication: UPPER RESPIRATORY TRACT INFECTION
     Dosage: 1 SQUIRT NASAL
     Route: 045
     Dates: start: 20030408, end: 20030410
  2. ZICAM COLD REMEDY MATRIXX [Suspect]
     Indication: UPPER RESPIRATORY TRACT INFECTION
     Dates: start: 20031106, end: 20031108
  3. FLONASE [Concomitant]
  4. LEVOXYL [Concomitant]
  5. LISINOPRIL AND HYDROCHLOROTHIAZIDE [Concomitant]
  6. ... [Concomitant]
  7. ZOCOR [Concomitant]
  8. PRILOSEC [Concomitant]

REACTIONS (3)
  - ANOSMIA [None]
  - NASAL DISCOMFORT [None]
  - THERAPY NON-RESPONDER [None]
